FAERS Safety Report 6367714-8 (Version None)
Quarter: 2009Q3

REPORT INFORMATION
  Report Type: 
  Country: None (occurrence: None)
  Receive Date: 20090921
  Receipt Date: 20090908
  Transmission Date: 20100115
  Serious: Yes (Other)
  Sender: FDA-Public Use
  Company Number: GR-CVT-090602

PATIENT

DRUGS (8)
  1. RANEXA [Suspect]
     Indication: ANGINA PECTORIS
     Dosage: 375 MG, BID
     Route: 048
     Dates: start: 20090101, end: 20090101
  2. METFORMIN HYDROCHLORIDE [Concomitant]
     Dosage: 850 MG, BID
     Route: 048
  3. GLIMEPIRIDE [Concomitant]
     Dosage: 6 MG, QD
     Route: 048
  4. GLYCERYL TRINITRATE [Concomitant]
     Dosage: 5 MG, QD
     Route: 048
  5. PERINDOPRIL [Concomitant]
     Dosage: 5 MG, QD
     Route: 048
  6. ACETYLSALICYLIC ACID [Concomitant]
     Dosage: 100 MG, QD
     Route: 048
  7. METOPROLOL                         /00376901/ [Concomitant]
     Dosage: 25 MG, BID
     Route: 048
  8. ATORVASTATIN CALCIUM [Concomitant]
     Dosage: 20 MG, QD
     Route: 048

REACTIONS (1)
  - DIABETES MELLITUS INADEQUATE CONTROL [None]
